FAERS Safety Report 5591955-0 (Version None)
Quarter: 2008Q1

REPORT INFORMATION
  Report Type: 
  Country: None (occurrence: None)
  Receive Date: 20080115
  Receipt Date: 20080107
  Transmission Date: 20080703
  Serious: Yes (Hospitalization)
  Sender: FDA-Public Use
  Company Number: US-ELI_LILLY_AND_COMPANY-US200801001570

PATIENT
  Age: 59 Year
  Sex: Female

DRUGS (5)
  1. HUMULIN 70/30 [Suspect]
     Dosage: 15 U, EACH MORNING
  2. HUMULIN 70/30 [Suspect]
     Dosage: 15 U, OTHER
  3. HUMULIN 70/30 [Suspect]
     Dosage: 20 U, EACH EVENING
  4. NOVOLIN N [Concomitant]
  5. NOVOLIN R [Concomitant]
     Dosage: UNK, AS NEEDED

REACTIONS (8)
  - BLOOD GLUCOSE INCREASED [None]
  - BLOOD PHOSPHORUS INCREASED [None]
  - DIARRHOEA [None]
  - DRUG INEFFECTIVE [None]
  - MYALGIA [None]
  - VIRAL INFECTION [None]
  - VISUAL ACUITY REDUCED [None]
  - VOMITING [None]
